FAERS Safety Report 6875717-X (Version None)
Quarter: 2010Q3

REPORT INFORMATION
  Report Type: 
  Country: None (occurrence: None)
  Receive Date: 20100727
  Receipt Date: 20070702
  Transmission Date: 20110219
  Serious: Yes (Death, Hospitalization)
  Sender: FDA-Public Use
  Company Number: US-PFIZER INC-2006092795

PATIENT
  Sex: Male
  Weight: 86.2 kg

DRUGS (2)
  1. CELEBREX [Suspect]
     Indication: GOUT
     Dates: start: 20010823, end: 20050927
  2. CELEBREX [Suspect]
     Indication: ARTHRITIS

REACTIONS (1)
  - MYOCARDIAL INFARCTION [None]
